FAERS Safety Report 5625034-0 (Version None)
Quarter: 2008Q1

REPORT INFORMATION
  Report Type: 
  Country: None (occurrence: None)
  Receive Date: 20080213
  Receipt Date: 20080201
  Transmission Date: 20080703
  Serious: Yes (Other)
  Sender: FDA-Public Use
  Company Number: FR-PFIZER INC-2007107326

PATIENT
  Sex: Male
  Weight: 65 kg

DRUGS (1)
  1. LYRICA [Suspect]

REACTIONS (2)
  - PANCREATIC INSUFFICIENCY [None]
  - PANCREATITIS [None]
